FAERS Safety Report 7990948-3 (Version None)
Quarter: 2011Q4

REPORT INFORMATION
  Report Type: 
  Country: None (occurrence: None)
  Receive Date: 20111219
  Receipt Date: 20111214
  Transmission Date: 20120403
  Serious: Yes (Other)
  Sender: FDA-Public Use
  Company Number: US-ROCHE-1022289

PATIENT
  Age: 49 Year
  Sex: Female

DRUGS (1)
  1. PEGASYS [Suspect]
     Indication: PRODUCT USED FOR UNKNOWN INDICATION
     Route: 065

REACTIONS (5)
  - SPEECH DISORDER [None]
  - FATIGUE [None]
  - EUPHORIC MOOD [None]
  - INSOMNIA [None]
  - DIZZINESS POSTURAL [None]
